FAERS Safety Report 5598200-0 (Version None)
Quarter: 2008Q1

REPORT INFORMATION
  Report Type: 
  Country: None (occurrence: None)
  Receive Date: 20080117
  Receipt Date: 20080117
  Transmission Date: 20080703
  Serious: Yes (Life-Threatening)
  Sender: FDA-Public Use
  Company Number: None

PATIENT

DRUGS (1)
  1. LABETALOL HCL [Suspect]
     Indication: HYPERTENSION
     Dosage: 20 MG  ONE DOSE  IV BOLUS
     Route: 040
     Dates: start: 20071231, end: 20071231

REACTIONS (2)
  - BLOOD PRESSURE SYSTOLIC DECREASED [None]
  - HEART RATE DECREASED [None]
